FAERS Safety Report 5972753-2 (Version None)
Quarter: 2008Q4

REPORT INFORMATION
  Report Type: 
  Country: None (occurrence: None)
  Receive Date: 20081126
  Receipt Date: 20081126
  Transmission Date: 20090506
  Serious: Yes (Other)
  Sender: FDA-Public Use
  Company Number: None

PATIENT
  Age: 47 Year
  Sex: Male
  Weight: 96.1626 kg

DRUGS (4)
  1. ULTRACET [Suspect]
     Indication: NECK PAIN
     Dosage: 1 TO 2 TABLETS EVERY 4 TO 6 HOURS PO
     Route: 048
     Dates: start: 20081122, end: 20081124
  2. CYMBALTA [Concomitant]
  3. AMBIEN [Concomitant]
  4. VYTORIN [Concomitant]

REACTIONS (6)
  - CONFUSIONAL STATE [None]
  - HALLUCINATION, VISUAL [None]
  - IRRITABILITY [None]
  - NEUROTOXICITY [None]
  - SEROTONIN SYNDROME [None]
  - SOMNOLENCE [None]
